FAERS Safety Report 16539182 (Version 1)
Quarter: 2019Q3

REPORT INFORMATION
  Report Type: Spontaneous
  Country: US (occurrence: US)
  Receive Date: 20190705
  Receipt Date: 20190705
  Transmission Date: 20191004
  Serious: Yes (Hospitalization)
  Sender: FDA-Public Use
  Company Number: None

PATIENT
  Sex: Female

DRUGS (1)
  1. GLATIRAMER [Suspect]
     Active Substance: GLATIRAMER
     Route: 058
     Dates: start: 20190611

REACTIONS (5)
  - Hypoaesthesia [None]
  - Bone pain [None]
  - Spinal fusion surgery [None]
  - Fall [None]
  - Neuropathy peripheral [None]
